FAERS Safety Report 8830029 (Version 6)
Quarter: 2013Q1

REPORT INFORMATION
  Report Type: Spontaneous
  Country: US (occurrence: US)
  Receive Date: 20121008
  Receipt Date: 20130325
  Transmission Date: 20140127
  Serious: Yes (Hospitalization, Disabling, Other)
  Sender: FDA-Public Use
  Company Number: US-009507513-1206USA00826

PATIENT
  Sex: Female
  Weight: 97.96 kg

DRUGS (6)
  1. FOSAMAX [Suspect]
     Indication: OSTEOPOROSIS PROPHYLAXIS
     Dosage: 10 MG, UNK
     Route: 048
     Dates: start: 200103, end: 200110
  2. FOSAMAX [Suspect]
     Dosage: 70 MG, QW
     Route: 048
     Dates: start: 200110, end: 20100512
  3. FOSAMAX [Suspect]
     Indication: OSTEOPOROSIS PROPHYLAXIS
     Dosage: 70 MG, QW
     Route: 048
     Dates: start: 20080529, end: 200901
  4. LOTREL [Concomitant]
     Indication: HYPERTENSION
     Dosage: UNK
     Dates: start: 2000, end: 2010
  5. TOPROL XL TABLETS [Concomitant]
     Indication: HYPERTENSION
     Dosage: UNK
     Dates: start: 2001, end: 2010
  6. ADVAIR [Concomitant]
     Indication: ASTHMA
     Dosage: UNK
     Dates: start: 2003

REACTIONS (34)
  - Femur fracture [Recovering/Resolving]
  - Femur fracture [Recovering/Resolving]
  - Intramedullary rod insertion [Unknown]
  - Intramedullary rod insertion [Unknown]
  - Procedural hypotension [Unknown]
  - Coma [Unknown]
  - Pneumonia aspiration [Unknown]
  - Acute respiratory distress syndrome [Unknown]
  - Respiratory failure [Unknown]
  - Decubitus ulcer [Unknown]
  - Cholecystectomy [Unknown]
  - Postoperative wound infection [Unknown]
  - Gingival operation [Unknown]
  - Periodontal operation [Unknown]
  - Oral surgery [Unknown]
  - Wound infection [Unknown]
  - Femur fracture [Unknown]
  - Ankle fracture [Recovering/Resolving]
  - Foot fracture [Unknown]
  - Tooth extraction [Unknown]
  - Dental implantation [Unknown]
  - Osteoarthritis [Unknown]
  - Aspiration [Unknown]
  - Osteopenia [Unknown]
  - Foot fracture [Unknown]
  - Ureteric stenosis [Unknown]
  - VIIth nerve paralysis [Unknown]
  - Appendicectomy [Unknown]
  - Depression [Unknown]
  - Bronchitis [Unknown]
  - Sinusitis [Unknown]
  - Osteoporosis [Unknown]
  - Dysphagia [Unknown]
  - Back pain [Unknown]
